FAERS Safety Report 6415835-3 (Version None)
Quarter: 2009Q4

REPORT INFORMATION
  Report Type: 
  Country: None (occurrence: None)
  Receive Date: 20091023
  Receipt Date: 20091013
  Transmission Date: 20100525
  Serious: Yes (Hospitalization, Other)
  Sender: FDA-Public Use
  Company Number: 233851K09USA

PATIENT
  Age: 50 Year
  Sex: Male

DRUGS (5)
  1. REBIF [Suspect]
     Indication: MULTIPLE SCLEROSIS
     Dosage: 44 MCG, 3 IN 1 WEEKS, SUBCUTANEOUS
     Route: 058
     Dates: start: 20041006
  2. DEXAMETHASONE SODIUM PHOSPHATE [Suspect]
     Indication: MULTIPLE SCLEROSIS
     Dates: start: 20040101
  3. UNSPECIFIED MEDICATIONS (ALL OTHER THERAPEUTIC PRODUCTS) [Concomitant]
  4. BACLOFEN [Concomitant]
  5. GABAPENTIN [Concomitant]

REACTIONS (4)
  - ASTHENIA [None]
  - AUTONOMIC NERVOUS SYSTEM IMBALANCE [None]
  - INTERVERTEBRAL DISC PROTRUSION [None]
  - OSTEONECROSIS [None]
